FAERS Safety Report 25751726 (Version 1)
Quarter: 2025Q3

REPORT INFORMATION
  Report Type: Spontaneous
  Country: US (occurrence: None)
  Receive Date: 20250901
  Receipt Date: 20250901
  Transmission Date: 20251021
  Serious: Yes (Hospitalization, Disabling, Other)
  Sender: FDA-CTU
  Company Number: None

PATIENT
  Age: 35 Year
  Sex: Female
  Weight: 81 kg

DRUGS (3)
  1. DULOXETINE [Suspect]
     Active Substance: DULOXETINE
     Indication: Pain
     Route: 048
     Dates: start: 20250813, end: 20250817
  2. GABAPENTIN [Concomitant]
     Active Substance: GABAPENTIN
  3. HYDROXYZINE [Concomitant]
     Active Substance: HYDROXYZINE HYDROCHLORIDE

REACTIONS (13)
  - Dizziness [None]
  - Decreased appetite [None]
  - Libido decreased [None]
  - Anxiety [None]
  - Nausea [None]
  - Back pain [None]
  - Pain [None]
  - Neck pain [None]
  - Arthralgia [None]
  - Crying [None]
  - Restlessness [None]
  - Drug hypersensitivity [None]
  - Walking aid user [None]

NARRATIVE: CASE EVENT DATE: 20250813
